FAERS Safety Report 16540161 (Version 3)
Quarter: 2019Q3

REPORT INFORMATION
  Report Type: Spontaneous
  Country: DE (occurrence: DE)
  Receive Date: 20190708
  Receipt Date: 20190731
  Transmission Date: 20191004
  Serious: Yes (Death, Hospitalization, Other)
  Sender: FDA-Public Use
  Company Number: DE-BRISTOL-MYERS SQUIBB COMPANY-BMS-2019-061895

PATIENT
  Age: 79 Year
  Sex: Female

DRUGS (1)
  1. YERVOY [Suspect]
     Active Substance: IPILIMUMAB
     Indication: MALIGNANT MELANOMA
     Dosage: 216 MILLIGRAM
     Route: 042
     Dates: end: 20190307

REACTIONS (3)
  - Chronic gastritis [Not Recovered/Not Resolved]
  - Autoimmune colitis [Not Recovered/Not Resolved]
  - Hypokalaemia [Fatal]

NARRATIVE: CASE EVENT DATE: 20190316
